FAERS Safety Report 21619551 (Version 2)
Quarter: 2022Q4

REPORT INFORMATION
  Report Type: Spontaneous
  Country: US (occurrence: US)
  Receive Date: 20221121
  Receipt Date: 20221221
  Transmission Date: 20230113
  Serious: No
  Sender: FDA-Public Use
  Company Number: US-GLAXOSMITHKLINE-USCH2022044607

PATIENT
  Sex: Female

DRUGS (4)
  1. ADVIL PM [Suspect]
     Active Substance: DIPHENHYDRAMINE CITRATE\IBUPROFEN
     Indication: Headache
     Dosage: UNK
  2. ADVIL PM [Suspect]
     Active Substance: DIPHENHYDRAMINE CITRATE\IBUPROFEN
     Indication: Pain
  3. ADVIL PM [Suspect]
     Active Substance: DIPHENHYDRAMINE CITRATE\IBUPROFEN
     Indication: Somnolence
  4. GLYCERIN, LIDOCAINE, PETROLATUM, AND PHENYLEPHRINE HYDROCHLORIDE [Suspect]
     Active Substance: GLYCERIN\LIDOCAINE\PETROLATUM\PHENYLEPHRINE HYDROCHLORIDE
     Indication: Haemorrhoids
     Dosage: UNK

REACTIONS (3)
  - Drug ineffective [Unknown]
  - Application site pain [Unknown]
  - Application site pain [Unknown]
